FAERS Safety Report 4830742-5 (Version None)
Quarter: 2005Q4

REPORT INFORMATION
  Report Type: 
  Country: None (occurrence: None)
  Receive Date: 20051117
  Receipt Date: 20050930
  Transmission Date: 20060501
  Serious: Yes (Other)
  Sender: FDA-Public Use
  Company Number: US-MERCK-0510USA00749

PATIENT
  Age: 84 Year
  Sex: Male
  Weight: 93 kg

DRUGS (2)
  1. VIOXX [Suspect]
     Indication: HIP ARTHROPLASTY
     Route: 048
     Dates: start: 20010122, end: 20010215
  2. VIOXX [Suspect]
     Indication: PAIN
     Route: 048
     Dates: start: 20010122, end: 20010215

REACTIONS (1)
  - MYOCARDIAL INFARCTION [None]
